FAERS Safety Report 19359913 (Version 1)
Quarter: 2021Q2

REPORT INFORMATION
  Report Type: Spontaneous
  Country: US (occurrence: US)
  Receive Date: 20210601
  Receipt Date: 20210601
  Transmission Date: 20210717
  Serious: No
  Sender: FDA-Public Use
  Company Number: US-PFIZER INC-2021205833

PATIENT
  Age: 74 Year
  Sex: Female
  Weight: 63.49 kg

DRUGS (4)
  1. LYRICA [Suspect]
     Active Substance: PREGABALIN
     Indication: HERPES ZOSTER
     Dosage: 25 MG, 1X/DAY
     Route: 048
     Dates: start: 20171023
  2. KLONOPIN [Concomitant]
     Active Substance: CLONAZEPAM
     Indication: HERPES ZOSTER
     Dosage: UNK, 3X/DAY (5MG; TAKE ONE HALF THREE TIME DAILY)
     Route: 048
  3. LEVOTHYROXINE. [Concomitant]
     Active Substance: LEVOTHYROXINE
     Indication: THYROID DISORDER
     Dosage: 25 UG, ALTERNATE DAY (ONCE EVERY OTHER DAY)
     Route: 048
  4. LYRICA [Suspect]
     Active Substance: PREGABALIN
     Dosage: 25 MG, 1X/DAY
     Route: 048

REACTIONS (6)
  - Gait inability [Not Recovered/Not Resolved]
  - Neuralgia [Recovering/Resolving]
  - Cognitive disorder [Not Recovered/Not Resolved]
  - Headache [Unknown]
  - Tremor [Not Recovered/Not Resolved]
  - Taste disorder [Not Recovered/Not Resolved]

NARRATIVE: CASE EVENT DATE: 20210216
